FAERS Safety Report 10100707 (Version 1)
Quarter: 2014Q2

REPORT INFORMATION
  Report Type: Spontaneous
  Country: US (occurrence: US)
  Receive Date: 20140423
  Receipt Date: 20140423
  Transmission Date: 20141212
  Serious: Yes (Other)
  Sender: FDA-Public Use
  Company Number: US-FRI-1000066743

PATIENT
  Sex: Female

DRUGS (1)
  1. LINZESS [Suspect]
     Dosage: 290 MCG
     Route: 048
     Dates: start: 2013, end: 2013

REACTIONS (1)
  - Anaphylactic reaction [Recovered/Resolved]
